FAERS Safety Report 8876299 (Version 1)
Quarter: 2012Q4

REPORT INFORMATION
  Report Type: Report from Study
  Country: CA (occurrence: CA)
  Receive Date: 20121031
  Receipt Date: 20121031
  Transmission Date: 20130627
  Serious: Yes (Other)
  Sender: FDA-Public Use
  Company Number: CA-JNJFOC-20120902285

PATIENT
  Age: 52 Year
  Sex: Female
  Weight: 101.2 kg

DRUGS (4)
  1. REMICADE [Suspect]
     Indication: CROHN^S DISEASE
     Route: 042
     Dates: start: 20120403
  2. REMICADE [Suspect]
     Indication: CROHN^S DISEASE
     Route: 042
     Dates: start: 20120905
  3. IMURAN [Concomitant]
     Route: 065
  4. ASACOL [Concomitant]
     Route: 065

REACTIONS (5)
  - Dyspnoea exertional [Unknown]
  - Weight increased [Unknown]
  - Infusion related reaction [Recovered/Resolved]
  - Infection [Not Recovered/Not Resolved]
  - Headache [Recovered/Resolved]
